FAERS Safety Report 4804008-3 (Version None)
Quarter: 2005Q3

REPORT INFORMATION
  Report Type: 
  Country: None (occurrence: None)
  Receive Date: 20050920
  Receipt Date: 20050809
  Transmission Date: 20060218
  Serious: No
  Sender: FDA-Public Use
  Company Number: US-YAMANOUCHI-YPA20050411

PATIENT
  Age: 71 Year
  Sex: Male
  Weight: 113.3993 kg

DRUGS (3)
  1. VESICARE [Suspect]
     Indication: HYPERTONIC BLADDER
     Dosage: 5 MG QD PO
     Route: 048
     Dates: start: 20050701
  2. TOPROL-XL [Concomitant]
  3. COZAAR [Concomitant]

REACTIONS (1)
  - RASH [None]
